FAERS Safety Report 4333763-4 (Version None)
Quarter: 2004Q2

REPORT INFORMATION
  Report Type: 
  Country: None (occurrence: None)
  Receive Date: 20040407
  Receipt Date: 20030828
  Transmission Date: 20050107
  Serious: Yes (Hospitalization)
  Sender: FDA-Public Use
  Company Number: 200318377GDDC

PATIENT
  Age: 67 Year
  Sex: Female
  Weight: 85 kg

DRUGS (11)
  1. DOCETAXEL [Suspect]
     Indication: NON-SMALL CELL LUNG CANCER
     Route: 042
     Dates: start: 20030820, end: 20030820
  2. GEMCITABINE [Suspect]
     Indication: NON-SMALL CELL LUNG CANCER
     Route: 042
     Dates: start: 20030813, end: 20030820
  3. ZESTRIL [Concomitant]
     Indication: BLOOD CHOLESTEROL DECREASED
     Route: 048
  4. ISOSORBIDE MONONITRATE [Concomitant]
     Route: 048
  5. FRUSEMIDE [Concomitant]
     Indication: HYPERTENSION
     Route: 048
  6. SEREVENT [Concomitant]
     Route: 055
  7. BECOTIDE [Concomitant]
     Route: 055
  8. PRAVASTATIN [Concomitant]
     Route: 048
  9. DILTIAZEM [Concomitant]
     Route: 048
  10. COCODAMOL [Concomitant]
     Indication: ANALGESIC EFFECT
     Dosage: DOSE: 8/500
  11. VENTOLIN [Concomitant]
     Route: 055

REACTIONS (7)
  - DIARRHOEA [None]
  - DYSPNOEA [None]
  - GANGRENE [None]
  - NEUTROPENIC SEPSIS [None]
  - PYREXIA [None]
  - RAYNAUD'S PHENOMENON [None]
  - WHEEZING [None]
